FAERS Safety Report 8353054-4 (Version None)
Quarter: 2012Q2

REPORT INFORMATION
  Report Type: 
  Country: None (occurrence: None)
  Receive Date: 20120511
  Receipt Date: 20120507
  Transmission Date: 20120825
  Serious: No
  Sender: FDA-Public Use
  Company Number: US-PFIZER INC-2012073228

PATIENT
  Sex: Male
  Weight: 67.12 kg

DRUGS (1)
  1. SUTENT [Suspect]
     Indication: METASTATIC RENAL CELL CARCINOMA
     Dosage: 50 MG, DAILY (1 CAPSULE DAILY, CYCLIC 4 WEEKS ON AND 2 OFF)
     Route: 048
     Dates: start: 20120316

REACTIONS (7)
  - ASTHENIA [None]
  - HEADACHE [None]
  - FATIGUE [None]
  - PAIN [None]
  - DECREASED APPETITE [None]
  - OEDEMA PERIPHERAL [None]
  - WEIGHT DECREASED [None]
